FAERS Safety Report 5121610-2 (Version None)
Quarter: 2006Q4

REPORT INFORMATION
  Report Type: 
  Country: None (occurrence: None)
  Receive Date: 20061006
  Receipt Date: 20060928
  Transmission Date: 20070319
  Serious: Yes (Other)
  Sender: FDA-Public Use
  Company Number: US-AVENTIS-200618151US

PATIENT
  Age: 82 Year
  Sex: Female

DRUGS (2)
  1. LOVENOX [Suspect]
     Indication: MYOCARDIAL ISCHAEMIA
     Dosage: DOSE: UNK
  2. HEPARIN [Suspect]
     Indication: MYOCARDIAL ISCHAEMIA
     Dosage: DOSE: UNK

REACTIONS (3)
  - ABDOMINAL PAIN [None]
  - HAEMATOMA [None]
  - RENAL FAILURE [None]
